FAERS Safety Report 5055784-9 (Version None)
Quarter: 2006Q3

REPORT INFORMATION
  Report Type: 
  Country: None (occurrence: None)
  Receive Date: 20060720
  Receipt Date: 20060713
  Transmission Date: 20061208
  Serious: Yes (Hospitalization)
  Sender: FDA-Public Use
  Company Number: LU-SP-2006-01807

PATIENT
  Age: 74 Year
  Sex: Female

DRUGS (4)
  1. IMMUCYST [Suspect]
     Indication: BLADDER CANCER
     Route: 043
     Dates: start: 20050127, end: 20050804
  2. EUTHYROX [Concomitant]
     Dates: start: 19900101
  3. FOSAMAX [Concomitant]
     Dates: start: 20010101
  4. FLUDEX [Concomitant]
     Dates: start: 20050821

REACTIONS (2)
  - CYSTITIS [None]
  - CYSTITIS NONINFECTIVE [None]
